FAERS Safety Report 4440626-2 (Version None)
Quarter: 2004Q3

REPORT INFORMATION
  Report Type: 
  Country: None (occurrence: None)
  Receive Date: 20040903
  Receipt Date: 20040823
  Transmission Date: 20050211
  Serious: Yes (Death, Life-Threatening)
  Sender: FDA-Public Use
  Company Number: JP-JNJFOC-20040700649

PATIENT
  Sex: Male

DRUGS (6)
  1. FENTANYL [Suspect]
     Indication: CANCER PAIN
     Route: 062
     Dates: start: 20040624, end: 20040629
  2. MORPHINE SULFATE [Concomitant]
     Route: 049
  3. MORPHINE SULFATE [Concomitant]
     Indication: CANCER PAIN
     Route: 049
  4. FAMOTIDINE [Concomitant]
     Indication: GASTRIC ULCER
     Route: 049
  5. ZOPICLONE [Concomitant]
     Route: 049
  6. DICLOFENAC [Concomitant]
     Indication: CANCER PAIN
     Route: 054

REACTIONS (4)
  - CONSTIPATION [None]
  - NAUSEA [None]
  - PNEUMONIA [None]
  - RESPIRATORY FAILURE [None]
